FAERS Safety Report 6171856-X (Version None)
Quarter: 2009Q2

REPORT INFORMATION
  Report Type: 
  Country: None (occurrence: None)
  Receive Date: 20090428
  Receipt Date: 20090428
  Transmission Date: 20091009
  Serious: No
  Sender: FDA-Public Use
  Company Number: None

PATIENT
  Sex: Female
  Weight: 82.73 kg

DRUGS (4)
  1. AVELOX [Suspect]
     Dosage: 400MG TABLET 400 MG QD ORAL
     Route: 048
     Dates: start: 20090421, end: 20090427
  2. HYDROCHLOROTHIAZIDE [Concomitant]
  3. LISINOPRIL [Concomitant]
  4. SIMVASTATIN [Concomitant]

REACTIONS (1)
  - GASTROINTESTINAL DISORDER [None]
